FAERS Safety Report 7594388-0 (Version None)
Quarter: 2011Q3

REPORT INFORMATION
  Report Type: 
  Country: None (occurrence: None)
  Receive Date: 20110707
  Receipt Date: 20110628
  Transmission Date: 20111222
  Serious: Yes (Hospitalization)
  Sender: FDA-Public Use
  Company Number: US-BIOGENIDEC-2011BI020445

PATIENT
  Sex: Female

DRUGS (7)
  1. ROPINIROLE [Concomitant]
     Indication: RESTLESS LEGS SYNDROME
  2. VITAMIN D [Concomitant]
  3. TYSABRI [Suspect]
     Indication: MULTIPLE SCLEROSIS
     Route: 042
     Dates: start: 20100622, end: 20110301
  4. TYSABRI [Suspect]
     Route: 042
     Dates: start: 20110101
  5. AMITRIPTYLINE HCL [Concomitant]
     Indication: RESTLESS LEGS SYNDROME
  6. PROVIGIL [Concomitant]
  7. PROZAC [Concomitant]
     Indication: DEPRESSION

REACTIONS (3)
  - MUSCLE SPASTICITY [None]
  - BLOOD IRON DECREASED [None]
  - CELLULITIS [None]
